FAERS Safety Report 6383913-3 (Version None)
Quarter: 2009Q3

REPORT INFORMATION
  Report Type: 
  Country: None (occurrence: None)
  Receive Date: 20090929
  Receipt Date: 20090929
  Transmission Date: 20100115
  Serious: Yes (Hospitalization)
  Sender: FDA-Public Use
  Company Number: None

PATIENT
  Sex: Male
  Weight: 3.085 kg

DRUGS (2)
  1. GENTAK [Suspect]
     Indication: OPHTHALMIA NEONATORUM
     Dosage: 1 APPLICATION TO EACH EYE ONCE OPHTHALMIC
     Route: 047
     Dates: start: 20090924, end: 20090924
  2. GENTAK [Suspect]
     Indication: PROPHYLAXIS
     Dosage: 1 APPLICATION TO EACH EYE ONCE OPHTHALMIC
     Route: 047
     Dates: start: 20090924, end: 20090924

REACTIONS (5)
  - BLISTER [None]
  - EYE SWELLING [None]
  - OCULAR HYPERAEMIA [None]
  - SKIN EXFOLIATION [None]
  - WOUND DRAINAGE [None]
